FAERS Safety Report 6894319-2 (Version None)
Quarter: 2010Q3

REPORT INFORMATION
  Report Type: 
  Country: None (occurrence: None)
  Receive Date: 20100802
  Receipt Date: 20100719
  Transmission Date: 20110219
  Serious: Yes (Hospitalization)
  Sender: FDA-Public Use
  Company Number: GB-RANBAXY-2009RR-23497

PATIENT
  Sex: Female

DRUGS (4)
  1. ZOCOR [Suspect]
     Indication: BLOOD CHOLESTEROL INCREASED
     Dosage: 10 MG, QD
     Route: 048
     Dates: start: 20060101, end: 20081201
  2. ZOCOR [Suspect]
     Dosage: 40 MG, QD
     Route: 048
     Dates: start: 20081201, end: 20081201
  3. AMLODIPINE [Concomitant]
     Dosage: 5 MG, UNK
     Route: 065
  4. OMEPRAZOLE [Concomitant]
     Route: 065

REACTIONS (3)
  - ALOPECIA [None]
  - DYSPHAGIA [None]
  - EATING DISORDER [None]
